FAERS Safety Report 7955042-6 (Version None)
Quarter: 2011Q4

REPORT INFORMATION
  Report Type: 
  Country: None (occurrence: None)
  Receive Date: 20111202
  Receipt Date: 20111130
  Transmission Date: 20120403
  Serious: Yes (Other)
  Sender: FDA-Public Use
  Company Number: GB-PFIZER INC-2011256499

PATIENT
  Sex: Male

DRUGS (1)
  1. VARENICLINE TARTRATE [Suspect]

REACTIONS (8)
  - ATAXIA [None]
  - LOSS OF EMPLOYMENT [None]
  - VITAMIN D ABNORMAL [None]
  - DYSKINESIA [None]
  - AFFECT LABILITY [None]
  - DISINHIBITION [None]
  - ABNORMAL BEHAVIOUR [None]
  - COGNITIVE DISORDER [None]
